FAERS Safety Report 6043057-7 (Version None)
Quarter: 2009Q1

REPORT INFORMATION
  Report Type: 
  Country: None (occurrence: None)
  Receive Date: 20090119
  Receipt Date: 20090114
  Transmission Date: 20090719
  Serious: Yes (Death, Hospitalization)
  Sender: FDA-Public Use
  Company Number: IN-ELI_LILLY_AND_COMPANY-IN200901000923

PATIENT
  Age: 70 Year
  Sex: Male

DRUGS (1)
  1. XIGRIS [Suspect]
     Indication: ORGAN FAILURE
     Dosage: UNK, UNKNOWN
     Route: 042
     Dates: start: 20090107, end: 20090107

REACTIONS (1)
  - CARDIAC FAILURE [None]
